FAERS Safety Report 9297099 (Version 3)
Quarter: 2013Q3

REPORT INFORMATION
  Report Type: Spontaneous
  Country: US (occurrence: US)
  Receive Date: 20130519
  Receipt Date: 20130711
  Transmission Date: 20140515
  Serious: No
  Sender: FDA-Public Use
  Company Number: US-009507513-1305USA007481

PATIENT
  Age: 18 Year
  Sex: Female
  Weight: 68.93 kg

DRUGS (1)
  1. NEXPLANON [Suspect]
     Indication: CONTRACEPTION
     Dosage: 1 ROD
     Route: 059
     Dates: start: 20130130, end: 20130508

REACTIONS (5)
  - Implant site pruritus [Unknown]
  - Implant site rash [Unknown]
  - Vaginal haemorrhage [Unknown]
  - Device breakage [Recovered/Resolved]
  - Menorrhagia [Recovered/Resolved]
